FAERS Safety Report 16243198 (Version 3)
Quarter: 2019Q2

REPORT INFORMATION
  Report Type: Spontaneous
  Country: JP (occurrence: JP)
  Receive Date: 20190426
  Receipt Date: 20190531
  Transmission Date: 20190711
  Serious: Yes (Other)
  Sender: FDA-Public Use
  Company Number: JP-GLAXOSMITHKLINE-JP2019JPN074503

PATIENT
  Age: 49 Year
  Sex: Male

DRUGS (3)
  1. TIVICAY [Suspect]
     Active Substance: DOLUTEGRAVIR SODIUM
     Dosage: 50 MG, QD
     Route: 048
  2. EPIVIR [Concomitant]
     Active Substance: LAMIVUDINE
     Dosage: 150 MG, QD
     Route: 048
     Dates: start: 201812, end: 20190424
  3. DESCOVY [Concomitant]
     Active Substance: EMTRICITABINE\TENOFOVIR ALAFENAMIDE FUMARATE
     Dosage: UNK

REACTIONS (3)
  - Hepatitis A [Recovered/Resolved]
  - Renal impairment [Not Recovered/Not Resolved]
  - Therapeutic product effect incomplete [Unknown]
